FAERS Safety Report 4853346-7 (Version None)
Quarter: 2005Q4

REPORT INFORMATION
  Report Type: 
  Country: None (occurrence: None)
  Receive Date: 20051212
  Receipt Date: 20051202
  Transmission Date: 20060501
  Serious: Yes (Disabling)
  Sender: FDA-Public Use
  Company Number: 2005-DE-05274GD

PATIENT
  Age: 42 Year
  Sex: Male

DRUGS (4)
  1. ZIDOVUDINE [Suspect]
     Indication: HIV INFECTION
     Dosage: 600 MG
  2. LAMIVUDINE [Suspect]
     Indication: HIV INFECTION
     Dosage: 300 MG
  3. KALETRA [Suspect]
     Indication: HIV INFECTION
     Dosage: 399/99 MG/DIE LOPINAVIR/RITONAVIR
  4. CIDOFOVIR (CIDOFOVIR) [Suspect]
     Indication: PROGRESSIVE MULTIFOCAL LEUKOENCEPHALOPATHY
     Dosage: 450 MG ONCE A WEK FOR THE FIRST TWO WEEKS AND EVERY OTHER WEEK THEREAFTER, IV
     Route: 042

REACTIONS (4)
  - BRAIN STEM SYNDROME [None]
  - NERVOUS SYSTEM DISORDER [None]
  - NUCLEAR MAGNETIC RESONANCE IMAGING BRAIN ABNORMAL [None]
  - WHEELCHAIR USER [None]
